FAERS Safety Report 7958952-9 (Version None)
Quarter: 2011Q4

REPORT INFORMATION
  Report Type: 
  Country: None (occurrence: None)
  Receive Date: 20111206
  Receipt Date: 20111130
  Transmission Date: 20120403
  Serious: Yes (Hospitalization)
  Sender: FDA-Public Use
  Company Number: US-SANOFI-AVENTIS-2011SA078979

PATIENT
  Age: 58 Year
  Sex: Female

DRUGS (4)
  1. GLIPIZIDE [Suspect]
     Route: 065
     Dates: end: 20110701
  2. AMARYL [Suspect]
     Route: 048
     Dates: end: 20110701
  3. NOVOLOG [Concomitant]
  4. ACTOS [Suspect]
     Route: 065
     Dates: end: 20110701

REACTIONS (4)
  - PNEUMONIA [None]
  - SEPSIS [None]
  - RESPIRATORY FAILURE [None]
  - RENAL FAILURE [None]
